FAERS Safety Report 7138363-9 (Version None)
Quarter: 2010Q4

REPORT INFORMATION
  Report Type: 
  Country: None (occurrence: None)
  Receive Date: 20101206
  Receipt Date: 20101124
  Transmission Date: 20110411
  Serious: Yes (Death, Other)
  Sender: FDA-Public Use
  Company Number: GXKR2010GB11222

PATIENT
  Age: 91 Year
  Sex: Female

DRUGS (18)
  1. DOXYCYCLINE (NGX) [Suspect]
     Indication: INFECTION
     Dosage: 25 MG, UNK
     Route: 065
     Dates: start: 20031107
  2. DOXYCYCLINE (NGX) [Interacting]
     Indication: CARDIAC FAILURE
     Dosage: 50 MG, UNK
     Route: 048
     Dates: start: 20090422, end: 20100422
  3. DOXYCYCLINE (NGX) [Interacting]
     Indication: HYPERTENSION
     Dosage: 100 MG, UNK
     Route: 048
     Dates: start: 20090422, end: 20100422
  4. DOXYCYCLINE (NGX) [Interacting]
     Dosage: UNK
     Route: 065
     Dates: start: 20090423
  5. LANTUS [Interacting]
     Indication: DIABETES MELLITUS
     Dosage: 12 IU, UNK
     Route: 058
     Dates: start: 20060303
  6. LANTUS [Interacting]
     Indication: CARDIAC FAILURE
     Dosage: 40 MG, UNK
     Dates: start: 20031107
  7. LANTUS [Interacting]
     Indication: HYPERTENSION
     Dosage: 125 UG, UNK
     Dates: start: 20060710, end: 20090513
  8. LANTUS [Interacting]
     Dosage: 22 IU, UNK
     Route: 058
     Dates: end: 20090513
  9. PAROXETINE HCL [Concomitant]
     Indication: ANXIETY
     Dosage: 20 MG, UNK
     Dates: start: 20031107
  10. PAROXETINE HCL [Concomitant]
     Indication: DEPRESSION
  11. DIGOXIN [Concomitant]
     Indication: ANXIETY
     Dosage: 20 MG, UNK
     Dates: start: 20031107
  12. DIGOXIN [Concomitant]
     Indication: DEPRESSION
  13. FUROSEMIDE [Concomitant]
     Indication: CARDIAC FAILURE
     Dosage: 40 MG, UNK
     Dates: start: 20040419
  14. FUROSEMIDE [Concomitant]
     Indication: HYPERTENSION
  15. ASPIRIN [Concomitant]
     Indication: CARDIAC FAILURE
     Dosage: 75 MG, UNK
     Dates: start: 20040419
  16. ASPIRIN [Concomitant]
     Indication: HYPERTENSION
     Dosage: 40 MG, UNK
     Dates: start: 20060710
  17. SPIRONOLACTONE [Concomitant]
     Indication: CARDIAC FAILURE
     Dosage: 25 MG, UNK
     Dates: start: 20031107
  18. SPIRONOLACTONE [Concomitant]
     Indication: HYPERTENSION

REACTIONS (6)
  - APHASIA [None]
  - ASTHENIA [None]
  - DRUG INTERACTION [None]
  - HYPERGLYCAEMIA [None]
  - HYPOGLYCAEMIA [None]
  - MOBILITY DECREASED [None]
